FAERS Safety Report 7880094-1 (Version None)
Quarter: 2011Q4

REPORT INFORMATION
  Report Type: 
  Country: None (occurrence: None)
  Receive Date: 20111101
  Receipt Date: 20111026
  Transmission Date: 20120403
  Serious: Yes (Other)
  Sender: FDA-Public Use
  Company Number: US-BAYER-2011-104704

PATIENT
  Age: 43 Year
  Sex: Female

DRUGS (1)
  1. MIRENA [Suspect]
     Indication: MENORRHAGIA
     Dosage: 20 MCG/24HR, CONT
     Route: 015
     Dates: start: 20110819, end: 20111020

REACTIONS (9)
  - VAGINAL HAEMORRHAGE [None]
  - POST PROCEDURAL HAEMORRHAGE [None]
  - WEIGHT INCREASED [None]
  - ABDOMINAL PAIN [None]
  - ABDOMINAL DISTENSION [None]
  - HEADACHE [None]
  - DEPRESSION [None]
  - ALOPECIA [None]
  - FATIGUE [None]
